FAERS Safety Report 5053500-8 (Version None)
Quarter: 2006Q3

REPORT INFORMATION
  Report Type: 
  Country: None (occurrence: None)
  Receive Date: 20060712
  Receipt Date: 20060621
  Transmission Date: 20061208
  Serious: Yes (Hospitalization)
  Sender: FDA-Public Use
  Company Number: GB200604001385

PATIENT
  Age: 33 Year
  Sex: Female

DRUGS (4)
  1. ZYPREXA [Suspect]
     Indication: PARANOIA
     Dosage: 2.5 MG, DAILY (1/D), ORAL
     Route: 048
     Dates: start: 20060405, end: 20060420
  2. FLUOXETINE [Suspect]
     Indication: DEPRESSION
     Dosage: 20 MG
     Dates: start: 20051019
  3. VENLAFAXINE HCL [Concomitant]
  4. RISPERIDONE [Concomitant]

REACTIONS (3)
  - CAROTID ARTERY DISSECTION [None]
  - CEREBROVASCULAR ACCIDENT [None]
  - DRUG EXPOSURE DURING PREGNANCY [None]
